FAERS Safety Report 8015726-0 (Version None)
Quarter: 2011Q4

REPORT INFORMATION
  Report Type: 
  Country: None (occurrence: None)
  Receive Date: 20111230
  Receipt Date: 20111228
  Transmission Date: 20120403
  Serious: No
  Sender: FDA-Public Use
  Company Number: PHEH2010US00451

PATIENT
  Sex: Female

DRUGS (7)
  1. TASIGNA [Suspect]
     Dosage: 200 MG BID
  2. PRILOSEC [Concomitant]
     Dosage: UNK UKN, UNK
  3. TRAZODONE HCL [Concomitant]
     Dosage: UNK UKN, UNK
  4. GLEEVEC [Suspect]
     Dosage: 400 MG BID
  5. CELEBREX [Concomitant]
     Dosage: UNK UKN, UNK
  6. CRESTOR [Concomitant]
     Dosage: UNK UKN, UNK
  7. OMEPRAZOLE [Concomitant]
     Dosage: UNK UKN, UNK

REACTIONS (6)
  - DEPRESSED MOOD [None]
  - NAUSEA [None]
  - DRUG RESISTANCE [None]
  - BLOOD TEST ABNORMAL [None]
  - HYPERAESTHESIA [None]
  - MUSCLE SPASMS [None]
